FAERS Safety Report 13791527 (Version 3)
Quarter: 2017Q3

REPORT INFORMATION
  Report Type: Spontaneous
  Country: JP (occurrence: JP)
  Receive Date: 20170725
  Receipt Date: 20170809
  Transmission Date: 20171127
  Serious: Yes (Life-Threatening, Other)
  Sender: FDA-Public Use
  Company Number: JP-ASTRAZENECA-2017SE75498

PATIENT
  Age: 67 Year
  Sex: Male
  Weight: 73 kg

DRUGS (10)
  1. BRILINTA [Suspect]
     Active Substance: TICAGRELOR
     Indication: ACUTE MYOCARDIAL INFARCTION
     Dosage: LOADING DOSE, 180 MILLIGRAMS EVERY DAY
     Route: 048
     Dates: start: 20170716, end: 20170716
  2. MAGNESIUM OXIDE. [Concomitant]
     Active Substance: MAGNESIUM OXIDE
     Indication: CONSTIPATION
     Route: 048
     Dates: start: 20170710
  3. CAPTORIL [Concomitant]
     Active Substance: CAPTOPRIL
     Indication: ACUTE MYOCARDIAL INFARCTION
     Route: 048
     Dates: start: 20170718
  4. ENALAPRIL [Concomitant]
     Active Substance: ENALAPRIL
     Indication: ACUTE MYOCARDIAL INFARCTION
     Route: 048
     Dates: start: 20170714, end: 20170715
  5. ENALAPRIL [Concomitant]
     Active Substance: ENALAPRIL
     Indication: ACUTE MYOCARDIAL INFARCTION
     Route: 048
     Dates: start: 20170716, end: 20170717
  6. FEBURIC [Concomitant]
     Active Substance: FEBUXOSTAT
     Indication: HYPERURICAEMIA
     Route: 048
     Dates: start: 20170710
  7. LIVALO [Concomitant]
     Active Substance: PITAVASTATIN CALCIUM
     Indication: ACUTE MYOCARDIAL INFARCTION
     Route: 048
     Dates: start: 20170715
  8. BRILINTA [Suspect]
     Active Substance: TICAGRELOR
     Indication: ACUTE MYOCARDIAL INFARCTION
     Route: 048
     Dates: start: 20170717, end: 20170716
  9. LEVOFLOXACIN. [Concomitant]
     Active Substance: LEVOFLOXACIN
     Indication: PNEUMONIA
     Route: 048
     Dates: start: 20170719
  10. TAKELDA [Concomitant]
     Active Substance: ASPIRIN\LANSOPRAZOLE
     Indication: ACUTE MYOCARDIAL INFARCTION
     Route: 048
     Dates: start: 20170709

REACTIONS (2)
  - Pulmonary alveolar haemorrhage [Unknown]
  - Haemorrhage intracranial [Unknown]

NARRATIVE: CASE EVENT DATE: 20170718
